FAERS Safety Report 4446844-1 (Version None)
Quarter: 2004Q3

REPORT INFORMATION
  Report Type: 
  Country: None (occurrence: None)
  Receive Date: 20040908
  Receipt Date: 20040825
  Transmission Date: 20050211
  Serious: Yes (Hospitalization)
  Sender: FDA-Public Use
  Company Number: 2004230342US

PATIENT
  Age: 45 Year
  Sex: Female
  Weight: 50.8 kg

DRUGS (6)
  1. DOSTINEX [Suspect]
     Indication: HYPERPROLACTINAEMIA
     Dosage: 0.25 MG TWICE WEEKLY, ORAL
     Route: 048
     Dates: start: 20040813
  2. SYNTHROID [Concomitant]
  3. ZOLOFT [Concomitant]
  4. PREVACID [Concomitant]
  5. IMITREX [Concomitant]
  6. ZELNORM [Concomitant]

REACTIONS (2)
  - EMBOLISM [None]
  - THROMBOPHLEBITIS [None]
